FAERS Safety Report 9967589 (Version 1)
Quarter: 2014Q1

REPORT INFORMATION
  Report Type: Report from Study
  Country: US (occurrence: US)
  Receive Date: 20140305
  Receipt Date: 20140305
  Transmission Date: 20141002
  Serious: No
  Sender: FDA-Public Use
  Company Number: US-ABBVIE-13P-163-1138924-00

PATIENT
  Age: 59 Year
  Sex: Female
  Weight: 65.83 kg

DRUGS (16)
  1. HUMIRA (ABBOTT) [Suspect]
     Indication: RHEUMATOID ARTHRITIS
     Dates: start: 201303, end: 20130716
  2. RITUXAN [Concomitant]
     Indication: RHEUMATOID ARTHRITIS
     Dates: start: 20130801
  3. PREDNISONE [Concomitant]
     Indication: RHEUMATOID ARTHRITIS
  4. PREVACID [Concomitant]
     Indication: GASTROOESOPHAGEAL REFLUX DISEASE
  5. TRAMADOL [Concomitant]
     Indication: PAIN
  6. PROBIOTIC [Concomitant]
     Indication: GASTROINTESTINAL DISORDER
  7. VITAMIN D [Concomitant]
     Indication: BONE DISORDER
     Route: 048
  8. VITAMIN B12 [Concomitant]
     Indication: VITAMIN B COMPLEX DEFICIENCY
     Route: 050
  9. MAGNESIUM [Concomitant]
     Indication: PRODUCT USED FOR UNKNOWN INDICATION
  10. VITAMIN C [Concomitant]
     Indication: PRODUCT USED FOR UNKNOWN INDICATION
  11. FLAX SEED OIL [Concomitant]
     Indication: CARDIOVASCULAR EVENT PROPHYLAXIS
  12. OMEGA [Concomitant]
     Indication: CARDIOVASCULAR EVENT PROPHYLAXIS
  13. KELP [Concomitant]
     Indication: LIVER DISORDER
  14. BIOTINE [Concomitant]
     Indication: HAIR DISORDER
  15. BIOTINE [Concomitant]
     Indication: SKIN DISORDER
  16. BIOTINE [Concomitant]
     Indication: NAIL DISORDER

REACTIONS (2)
  - Injection site scar [Recovering/Resolving]
  - Drug ineffective [Not Recovered/Not Resolved]
